FAERS Safety Report 7256470-7 (Version None)
Quarter: 2011Q1

REPORT INFORMATION
  Report Type: 
  Country: None (occurrence: None)
  Receive Date: 20110129
  Receipt Date: 20100804
  Transmission Date: 20110831
  Serious: No
  Sender: FDA-Public Use
  Company Number: US-ABBOTT-10P-163-0661736-00

PATIENT
  Age: 36 Year
  Sex: Male

DRUGS (1)
  1. HUMIRA [Suspect]
     Indication: PSORIATIC ARTHROPATHY
     Dates: start: 20091101

REACTIONS (5)
  - JOINT SWELLING [None]
  - ALANINE AMINOTRANSFERASE INCREASED [None]
  - SWELLING FACE [None]
  - ASPARTATE AMINOTRANSFERASE INCREASED [None]
  - ARTHROPOD STING [None]
